FAERS Safety Report 10314031 (Version 1)
Quarter: 2014Q3

REPORT INFORMATION
  Report Type: Spontaneous
  Country: GB (occurrence: GB)
  Receive Date: 20140718
  Receipt Date: 20140718
  Transmission Date: 20150326
  Serious: Yes (Life-Threatening, Other)
  Sender: FDA-Public Use
  Company Number: GB-ACTAVIS-2014-15402

PATIENT
  Age: 86 Year
  Sex: Male

DRUGS (1)
  1. DONEPEZIL (UNKNOWN) [Suspect]
     Active Substance: DONEPEZIL
     Indication: DEMENTIA ALZHEIMER^S TYPE
     Dosage: 10 MG, UNKNOWN
     Route: 048
     Dates: start: 20140328

REACTIONS (4)
  - Upper gastrointestinal haemorrhage [Unknown]
  - Syncope [Unknown]
  - Duodenal ulcer [Recovered/Resolved]
  - Melaena [Unknown]

NARRATIVE: CASE EVENT DATE: 20140603
